FAERS Safety Report 8044974 (Version 6)
Quarter: 2013Q4

REPORT INFORMATION
  Report Type: Report from Study
  Country: JP (occurrence: JP)
  Receive Date: 20110720
  Receipt Date: 20131129
  Transmission Date: 20140711
  Serious: Yes (Hospitalization)
  Sender: FDA-Public Use
  Company Number: JP-SANOFI-AVENTIS-2011SA045566

PATIENT
  Age: 60 Year
  Sex: Female
  Weight: 75 kg

DRUGS (11)
  1. LEFLUNOMIDE [Suspect]
     Indication: RHEUMATOID ARTHRITIS
     Route: 048
     Dates: start: 20101005, end: 20101207
  2. LEFLUNOMIDE [Suspect]
     Indication: RHEUMATOID ARTHRITIS
     Route: 048
     Dates: end: 20110110
  3. RHEUMATREX [Concomitant]
     Indication: RHEUMATOID ARTHRITIS
     Dosage: IT WAS STARTED BEFORE THE ADMINISTRATION OF LEFLUNOMIDE.
     Route: 048
     Dates: end: 20101101
  4. RHEUMATREX [Concomitant]
     Indication: RHEUMATOID ARTHRITIS
     Route: 048
     Dates: start: 20101102, end: 20110110
  5. FOLIAMIN [Concomitant]
     Indication: PROPHYLAXIS
     Dosage: IT WAS STARTED BEFORE THE ADMINISTRATION OF LEFLUNOMIDE.
     Route: 048
     Dates: end: 20110110
  6. PREDONINE [Concomitant]
     Indication: RHEUMATOID ARTHRITIS
     Dates: start: 20110804
  7. PREDONINE [Concomitant]
     Indication: RHEUMATOID ARTHRITIS
     Route: 048
     Dates: start: 20110512
  8. PREDONINE [Concomitant]
     Indication: RHEUMATOID ARTHRITIS
     Route: 048
  9. CELECOXIB [Concomitant]
     Indication: RHEUMATOID ARTHRITIS
     Dosage: IT WAS STARTED BEFORE THE ADMINISTRATION OF LEFLUNOMIDE.
     Route: 048
     Dates: end: 20110110
  10. REBAMIPIDE [Concomitant]
     Indication: RHEUMATOID ARTHRITIS
     Dosage: IT WAS STARTED BEFORE THE ADMINISTRATION OF LEFLUNOMIDE.
     Route: 048
     Dates: end: 20110110
  11. VOLTAREN [Concomitant]
     Indication: RHEUMATOID ARTHRITIS
     Dosage: IT WAS STARTED BEFORE THE ADMINISTRATION OF LEFLUNOMIDE.?TAPE
     Route: 062
     Dates: end: 20110110

REACTIONS (11)
  - Hepatitis B [Recovered/Resolved]
  - Blood bilirubin increased [Recovered/Resolved]
  - Prothrombin level decreased [Recovered/Resolved]
  - Aspartate aminotransferase increased [Recovered/Resolved]
  - Alanine aminotransferase increased [Recovered/Resolved]
  - Ammonia increased [Recovered/Resolved]
  - Hepatitis B surface antigen positive [Recovered/Resolved]
  - Hepatitis B DNA increased [Recovered/Resolved]
  - Blood alkaline phosphatase increased [Recovered/Resolved]
  - Gamma-glutamyltransferase increased [Recovered/Resolved]
  - Rheumatoid arthritis [Unknown]
